FAERS Safety Report 5609914-8 (Version None)
Quarter: 2008Q1

REPORT INFORMATION
  Report Type: 
  Country: None (occurrence: None)
  Receive Date: 20080129
  Receipt Date: 20080117
  Transmission Date: 20080703
  Serious: Yes (Hospitalization)
  Sender: FDA-Public Use
  Company Number: 2007BI011630

PATIENT
  Age: 57 Year
  Sex: Male

DRUGS (1)
  1. AVONEX [Suspect]
     Indication: MULTIPLE SCLEROSIS
     Dosage: 30 UG;QW;IM
     Route: 030
     Dates: start: 20070201, end: 20070701

REACTIONS (7)
  - BLADDER DISORDER [None]
  - CHOLECYSTITIS [None]
  - CHOLELITHIASIS [None]
  - DECUBITUS ULCER [None]
  - GALLBLADDER DISORDER [None]
  - INFECTED SKIN ULCER [None]
  - OSTEOMYELITIS [None]
